FAERS Safety Report 8917079 (Version 1)
Quarter: 2012Q4

REPORT INFORMATION
  Report Type: 
  Country: US (occurrence: US)
  Receive Date: 20121120
  Receipt Date: 20121120
  Transmission Date: 20130627
  Serious: No
  Sender: FDA-Public Use
  Company Number: US-ALLERGAN-1213863US

PATIENT
  Age: 30 Year
  Sex: Female

DRUGS (1)
  1. LASTACAFT [Suspect]
     Indication: DRUG USE FOR UNKNOWN INDICATION
     Dosage: UNK
     Route: 047
     Dates: start: 201204

REACTIONS (1)
  - Ocular hyperaemia [Not Recovered/Not Resolved]
